FAERS Safety Report 6900013-1 (Version None)
Quarter: 2010Q3

REPORT INFORMATION
  Report Type: 
  Country: None (occurrence: None)
  Receive Date: 20100803
  Receipt Date: 20100722
  Transmission Date: 20110219
  Serious: Yes (Death, Hospitalization)
  Sender: FDA-Public Use
  Company Number: GB-BRISTOL-MYERS SQUIBB COMPANY-15218530

PATIENT
  Age: 76 Year
  Sex: Female
  Weight: 92 kg

DRUGS (16)
  1. METFORMIN HCL [Suspect]
     Route: 048
     Dates: start: 20100209, end: 20100209
  2. PARACETAMOL [Suspect]
  3. IBUPROFEN [Suspect]
  4. QUININE [Suspect]
     Route: 048
     Dates: start: 20100209, end: 20100210
  5. LEVOTHYROXINE SODIUM [Suspect]
  6. ADCAL-D3 [Concomitant]
  7. ALENDRONIC ACID [Concomitant]
  8. AMLODIPINE [Concomitant]
  9. ASPIRIN [Concomitant]
  10. ATORVASTATIN [Concomitant]
  11. BISOPROLOL FUMARATE [Concomitant]
  12. FERROUS SULFATE [Concomitant]
  13. GLYCERYL TRINITRATE [Concomitant]
  14. ISOSORBIDE MONONITRATE [Concomitant]
  15. PRILOSEC [Concomitant]
  16. TEMAZEPAM [Concomitant]

REACTIONS (1)
  - MULTIPLE DRUG OVERDOSE [None]
